FAERS Safety Report 10621523 (Version 1)
Quarter: 2014Q4

REPORT INFORMATION
  Report Type: Spontaneous
  Country: US (occurrence: US)
  Receive Date: 20141203
  Receipt Date: 20141203
  Transmission Date: 20150529
  Serious: Yes (Other)
  Sender: FDA-Public Use
  Company Number: US-CIPLA LTD.-2014US02273

PATIENT
  Age: 8 Year
  Sex: Male

DRUGS (6)
  1. CARBOPLATIN. [Suspect]
     Active Substance: CARBOPLATIN
     Indication: HEPATOBLASTOMA
     Dosage: AUC OF 3 MG/ML/MIN FOR 3 DAYS (DAYS 1, 2, AND 3).
  2. MESNA. [Suspect]
     Active Substance: MESNA
     Indication: HEPATOBLASTOMA
     Dosage: 360 MG/M2 DAYS 1 THROUGH 5 AT 4 AND 8 HR AFTER THE DOSE OF IFOSFAMIDE
  3. IFOSFAMIDE. [Suspect]
     Active Substance: IFOSFAMIDE
     Indication: HEPATOBLASTOMA
     Dosage: 3,000 MG/M2/DAY FOR 3 DAYS (DAYS 1, 2, AND 3)
  4. TOPOTECAN [Suspect]
     Active Substance: TOPOTECAN\TOPOTECAN HYDROCHLORIDE
     Indication: HEPATOBLASTOMA
     Dosage: 0.5 MG/M2/DAY FOR 3 DAYS (DAYS 1, 2, AND 3).
  5. FILGRASTIM [Suspect]
     Active Substance: FILGRASTIM
     Indication: HEPATOBLASTOMA
  6. IV HYDRATION THERAPY [Suspect]
     Active Substance: UNSPECIFIED INGREDIENT
     Indication: HEPATOBLASTOMA
     Dosage: 6 HR AFTER CARBOPLATIN DOSE FOR 5 DAYS

REACTIONS (2)
  - Disease progression [Unknown]
  - Neurotoxicity [None]
